FAERS Safety Report 20460002 (Version 1)
Quarter: 2022Q1

REPORT INFORMATION
  Report Type: Report from Study
  Country: TH (occurrence: None)
  Receive Date: 20220211
  Receipt Date: 20220211
  Transmission Date: 20220423
  Serious: Yes (Hospitalization)
  Sender: FDA-Public Use
  Company Number: TH-ROCHE-2938790

PATIENT
  Age: 67 Year
  Sex: Male
  Weight: 66.5 kg

DRUGS (14)
  1. PLACEBO [Suspect]
     Active Substance: UNSPECIFIED INGREDIENT
     Indication: Bile duct cancer
     Dosage: ON 06/OCT/2021, HE RECEIVED THE MOST RECENT DOSE OF BLINDED BEVACIZUMAB PRIOR TO SAE.
     Route: 042
     Dates: start: 20210623
  2. ATEZOLIZUMAB [Suspect]
     Active Substance: ATEZOLIZUMAB
     Indication: Bile duct cancer
     Dosage: ON 06/OCT/2021, HE RECEIVED THE MOST RECENT DOSE(1200 MG) OF ATEZOLIZUMAB PRIOR TO SAE.
     Route: 041
     Dates: start: 20210623
  3. CISPLATIN [Suspect]
     Active Substance: CISPLATIN
     Indication: Bile duct cancer
     Dosage: ON DAYS 1 AND 8 OF EACH 21-DAY CYCLE FOR CYCLES 1-8?ON 06/OCT/2021, HE RECEIVED THE MOST RECENT DOSE
     Route: 042
     Dates: start: 20210623
  4. GEMCITABINE [Suspect]
     Active Substance: GEMCITABINE
     Indication: Bile duct cancer
     Dosage: ON DAYS 1 AND 8 OF EACH 21-DAY CYCLE FOR CYCLES 1-8?ON 06/OCT/2021, HE RECEIVED THE MOST RECENT DOSE
     Route: 042
     Dates: start: 20210623
  5. AMLODIPINE [Concomitant]
     Active Substance: AMLODIPINE BESYLATE
     Indication: Hypertension
     Route: 065
  6. SIMVASTATIN [Concomitant]
     Active Substance: SIMVASTATIN
     Indication: Dyslipidaemia
     Route: 065
  7. FERROUS FUMARATE [Concomitant]
     Active Substance: FERROUS FUMARATE
     Indication: Anaemia
     Route: 065
     Dates: start: 20211006
  8. PALONOSETRON [Concomitant]
     Active Substance: PALONOSETRON
     Dates: start: 20210623, end: 20211201
  9. DEXAMETHASONE [Concomitant]
     Active Substance: DEXAMETHASONE
     Dates: start: 20210623, end: 20211201
  10. OLANZAPINE [Concomitant]
     Active Substance: OLANZAPINE
     Dates: start: 20210623
  11. OLANZAPINE [Concomitant]
     Active Substance: OLANZAPINE
     Dates: start: 20210915, end: 20210918
  12. OLANZAPINE [Concomitant]
     Active Substance: OLANZAPINE
     Dates: start: 20210922, end: 20210925
  13. OLANZAPINE [Concomitant]
     Active Substance: OLANZAPINE
     Dates: start: 20211006, end: 20211009
  14. SODIUM CHLORIDE [Concomitant]
     Active Substance: SODIUM CHLORIDE
     Dates: start: 20210623, end: 20211201

REACTIONS (1)
  - Cholangitis [Recovered/Resolved]

NARRATIVE: CASE EVENT DATE: 20211015
